FAERS Safety Report 6249099-0 (Version None)
Quarter: 2009Q2

REPORT INFORMATION
  Report Type: 
  Country: None (occurrence: None)
  Receive Date: 20090624
  Receipt Date: 20090609
  Transmission Date: 20091009
  Serious: Yes (Hospitalization)
  Sender: FDA-Public Use
  Company Number: IDA-00219

PATIENT
  Age: 79 Year
  Sex: Female

DRUGS (7)
  1. NEXIUM [Suspect]
     Indication: HYPERTENSION
     Dosage: ORAL FORMULATION: TABLET
     Route: 048
  2. NEXIUM [Suspect]
  3. CRESTOR [Suspect]
     Dosage: ORAL FORMULATION: TABLET
     Route: 048
  4. ACETAMINOPHEN [Suspect]
     Dosage: 3 G QD, ORAL
     Route: 048
  5. ASPEGIC (ACETYLSALICYLATE LYSINE)(ACETYLSALICYLATE LYSINE) [Concomitant]
  6. PRETERAX (INDAPAMIDE, PERINDOPRIL ERBUMINE) [Concomitant]
  7. LEXOMIL (BROMAZEPAM) [Concomitant]

REACTIONS (5)
  - ASTHENIA [None]
  - CELL DEATH [None]
  - DRUG RASH WITH EOSINOPHILIA AND SYSTEMIC SYMPTOMS [None]
  - JAUNDICE CHOLESTATIC [None]
  - PYREXIA [None]
